FAERS Safety Report 5475812-6 (Version None)
Quarter: 2007Q4

REPORT INFORMATION
  Report Type: 
  Country: None (occurrence: None)
  Receive Date: 20071003
  Receipt Date: 20071001
  Transmission Date: 20080405
  Serious: Yes (Other)
  Sender: FDA-Public Use
  Company Number: A0685686A

PATIENT
  Sex: Male

DRUGS (1)
  1. ZYBAN [Suspect]
     Dosage: 150MG TWICE PER DAY
     Route: 048
     Dates: start: 20070918, end: 20070924

REACTIONS (6)
  - FLUSHING [None]
  - GLOSSODYNIA [None]
  - INDURATION [None]
  - OEDEMA [None]
  - RASH MACULAR [None]
  - VASCULITIS [None]
